FAERS Safety Report 19594489 (Version 1)
Quarter: 2021Q3

REPORT INFORMATION
  Report Type: Spontaneous
  Country: US (occurrence: US)
  Receive Date: 20210722
  Receipt Date: 20210722
  Transmission Date: 20211014
  Serious: Yes (Other)
  Sender: FDA-Public Use
  Company Number: US-DRREDDYS-SPO/USA/21/0137918

PATIENT
  Age: 40 Year
  Sex: Female

DRUGS (1)
  1. ZENATANE [Suspect]
     Active Substance: ISOTRETINOIN
     Indication: PRODUCT USED FOR UNKNOWN INDICATION
     Dosage: RMA ISSUE DATE: 25/JAN/2021 4:55:51 PM, 9/ MAR/2021 6:45:11 AM, 5/APR/2021 4:27:42 PM, 6/ MAY/2021 5

REACTIONS (2)
  - Hysterectomy [Unknown]
  - Infertility female [Unknown]

NARRATIVE: CASE EVENT DATE: 20210521
